FAERS Safety Report 5723027-6 (Version None)
Quarter: 2008Q2

REPORT INFORMATION
  Report Type: 
  Country: None (occurrence: None)
  Receive Date: 20080423
  Receipt Date: 20070919
  Transmission Date: 20081010
  Serious: Yes (Death)
  Sender: FDA-Public Use
  Company Number: 248033

PATIENT
  Age: 70 Year
  Sex: Female

DRUGS (4)
  1. AVASTIN(BEVACIZUMAB) POWDER AND SOLVENT FOR SOLUTION FOR INFUSION , 10 [Suspect]
     Indication: BREAST CANCER METASTATIC
     Dosage: 10 MG/KG, QOW, INTRAVENOUS
     Route: 042
     Dates: start: 20060901
  2. HERCEPTIN [Suspect]
     Indication: BREAST CANCER METASTATIC
     Dosage: 2 MG/KG, 1/WEEK, INTRAVENOUS
     Route: 042
     Dates: start: 20050901
  3. ZOMETA [Concomitant]
  4. TAXOTERE [Concomitant]

REACTIONS (1)
  - DISEASE PROGRESSION [None]
